FAERS Safety Report 5386413-2 (Version None)
Quarter: 2007Q3

REPORT INFORMATION
  Report Type: 
  Country: None (occurrence: None)
  Receive Date: 20070713
  Receipt Date: 20070706
  Transmission Date: 20080115
  Serious: Yes (Hospitalization)
  Sender: FDA-Public Use
  Company Number: GB-JNJFOC-20070701310

PATIENT
  Age: 15 Year
  Sex: Female
  Weight: 48 kg

DRUGS (2)
  1. EXTRA STRENGTH PARACETAMOL [Suspect]
     Route: 048
  2. EXTRA STRENGTH PARACETAMOL [Suspect]
     Indication: INTENTIONAL DRUG MISUSE
     Dosage: 96 TABLETS
     Route: 048

REACTIONS (2)
  - HYPOKALAEMIA [None]
  - INTENTIONAL OVERDOSE [None]
